FAERS Safety Report 23588429 (Version 7)
Quarter: 2025Q3

REPORT INFORMATION
  Report Type: Spontaneous
  Country: EU (occurrence: EU)
  Receive Date: 20240302
  Receipt Date: 20250829
  Transmission Date: 20251020
  Serious: Yes (Hospitalization, Other)
  Sender: AUROBINDO
  Company Number: EU-AUROBINDO-AUR-APL-2024-009106

PATIENT
  Age: 41 Year
  Sex: Male

DRUGS (39)
  1. BUTYLSCOPOLAMINE BROMIDE [Suspect]
     Active Substance: BUTYLSCOPOLAMINE BROMIDE
     Indication: Pain
     Dosage: 10 MILLIGRAM, 3 TIMES A DAY
  2. BUTYLSCOPOLAMINE BROMIDE [Suspect]
     Active Substance: BUTYLSCOPOLAMINE BROMIDE
     Indication: Abdominal pain
     Dosage: 10 MILLIGRAM, 3 TIMES A DAY
     Route: 048
  3. BUTYLSCOPOLAMINE BROMIDE [Suspect]
     Active Substance: BUTYLSCOPOLAMINE BROMIDE
     Indication: Breakthrough pain
  4. BUTYLSCOPOLAMINE BROMIDE [Suspect]
     Active Substance: BUTYLSCOPOLAMINE BROMIDE
     Indication: Visceral pain
  5. PREGABALIN [Suspect]
     Active Substance: PREGABALIN
     Indication: Visceral pain
     Dosage: 600 MILLIGRAM, TWO TIMES A DAY (300 MILLIGRAM TWO TIMES A DAY)
     Route: 065
  6. PREGABALIN [Suspect]
     Active Substance: PREGABALIN
     Indication: Pain
  7. ACETAMINOPHEN [Suspect]
     Active Substance: ACETAMINOPHEN
     Indication: Visceral pain
     Dosage: 1 GRAM, 3 TIMES A DAY
     Route: 065
  8. ACETAMINOPHEN [Suspect]
     Active Substance: ACETAMINOPHEN
     Dosage: 1 GRAM, ONCE A DAY
     Route: 065
  9. ACETAMINOPHEN [Suspect]
     Active Substance: ACETAMINOPHEN
     Indication: Visceral pain
     Dosage: 1 GRAM, 3 TIMES A DAY
     Route: 065
  10. SERTRALINE [Interacting]
     Active Substance: SERTRALINE HYDROCHLORIDE
     Indication: Mood altered
     Dosage: 50 MILLIGRAM, ONCE A DAY (MORNING)
     Route: 065
  11. SERTRALINE [Interacting]
     Active Substance: SERTRALINE HYDROCHLORIDE
     Indication: Tearfulness
  12. SERTRALINE [Interacting]
     Active Substance: SERTRALINE HYDROCHLORIDE
     Indication: Irritability
  13. SERTRALINE [Interacting]
     Active Substance: SERTRALINE HYDROCHLORIDE
     Indication: Sleep disorder
  14. SERTRALINE [Interacting]
     Active Substance: SERTRALINE HYDROCHLORIDE
     Indication: Depression
  15. SERTRALINE [Interacting]
     Active Substance: SERTRALINE HYDROCHLORIDE
     Indication: Insomnia
  16. DULOXETINE [Suspect]
     Active Substance: DULOXETINE
     Indication: Pain
     Route: 065
  17. DEXAMETHASONE [Suspect]
     Active Substance: DEXAMETHASONE
     Indication: Pain
     Route: 065
  18. FENTANYL [Suspect]
     Active Substance: FENTANYL
     Indication: Visceral pain
     Dosage: 100 MICROGRAM, EVERY HOUR
     Route: 062
  19. FENTANYL [Suspect]
     Active Substance: FENTANYL
     Dosage: 50 MICROGRAM, EVERY HOUR
     Route: 062
  20. FENTANYL [Suspect]
     Active Substance: FENTANYL
     Indication: Visceral pain
     Dosage: 50 MICROGRAM, EVERY HOUR
     Route: 062
  21. FENTANYL [Suspect]
     Active Substance: FENTANYL
     Indication: Pain prophylaxis
     Dosage: 100 MICROGRAM, EVERY HOUR
     Route: 062
  22. FENTANYL [Suspect]
     Active Substance: FENTANYL
     Indication: Pain prophylaxis
     Dosage: 200 MICROGRAM, EVERY HOUR
     Route: 045
  23. FENTANYL [Suspect]
     Active Substance: FENTANYL
     Route: 045
  24. LIDOCAINE HYDROCHLORIDE [Suspect]
     Active Substance: LIDOCAINE HYDROCHLORIDE
     Indication: Pain
     Route: 065
  25. MIANSERIN [Suspect]
     Active Substance: MIANSERIN
     Indication: Mood altered
     Dosage: 30 MILLIGRAM, ONCE A DAY (EVENING)
     Route: 065
  26. MIANSERIN [Suspect]
     Active Substance: MIANSERIN
     Indication: Sleep disorder
  27. MIANSERIN [Suspect]
     Active Substance: MIANSERIN
     Indication: Tearfulness
  28. MIANSERIN [Suspect]
     Active Substance: MIANSERIN
     Indication: Irritability
  29. MIANSERIN [Suspect]
     Active Substance: MIANSERIN
     Indication: Affective disorder
  30. MIANSERIN [Suspect]
     Active Substance: MIANSERIN
     Indication: Depression
  31. METAMIZOLE [Suspect]
     Active Substance: METAMIZOLE
     Indication: Pain
     Route: 065
  32. SERTRALINE [Suspect]
     Active Substance: SERTRALINE HYDROCHLORIDE
     Indication: Mood altered
     Dosage: 50 MILLIGRAM, ONCE A DAY
     Route: 065
  33. VALPROIC ACID [Suspect]
     Active Substance: VALPROIC ACID
     Indication: Pain
     Route: 065
  34. SERTRALINE [Concomitant]
     Active Substance: SERTRALINE HYDROCHLORIDE
     Indication: Affective disorder
     Dosage: 50 MILLIGRAM, ONCE A DAY
     Route: 065
  35. SERTRALINE [Concomitant]
     Active Substance: SERTRALINE HYDROCHLORIDE
     Indication: Mood altered
  36. MIANSERIN [Concomitant]
     Active Substance: MIANSERIN
     Indication: Affective disorder
     Dosage: 30 MILLIGRAM, ONCE A DAY
     Route: 065
  37. ACETAMINOPHEN [Concomitant]
     Active Substance: ACETAMINOPHEN
     Indication: Visceral pain
     Dosage: 1 GRAM, 3 TIMES A DAY
     Route: 065
  38. BUTYLSCOPOLAMINE BROMIDE [Concomitant]
     Active Substance: BUTYLSCOPOLAMINE BROMIDE
     Indication: Abdominal pain
     Dosage: 30 MILLIGRAM, ONCE A DAY
     Route: 048
  39. BUTYLSCOPOLAMINE BROMIDE [Concomitant]
     Active Substance: BUTYLSCOPOLAMINE BROMIDE
     Indication: Breakthrough pain

REACTIONS (17)
  - Hyperaesthesia [Recovered/Resolved]
  - Neurotoxicity [Recovered/Resolved]
  - Hypersomnia [Unknown]
  - Abdominal pain [Recovering/Resolving]
  - Drug interaction [Recovered/Resolved]
  - Somnolence [Recovered/Resolved]
  - Sensitisation [Recovered/Resolved]
  - Pain [Recovered/Resolved]
  - Medication error [Recovered/Resolved]
  - Condition aggravated [Recovering/Resolving]
  - Therapeutic product effect incomplete [Unknown]
  - Wrong product administered [Unknown]
  - Product prescribing error [Unknown]
  - Drug-disease interaction [Unknown]
  - Off label use [Unknown]
  - Drug ineffective for unapproved indication [Unknown]
  - Affective disorder [Unknown]
